FAERS Safety Report 8771485 (Version 1)
Quarter: 2012Q4

REPORT INFORMATION
  Report Type: 
  Country: FR (occurrence: FR)
  Receive Date: 20120906
  Receipt Date: 20120906
  Transmission Date: 20130627
  Serious: Yes (Hospitalization)
  Sender: FDA-Public Use
  Company Number: FR-GLAXOSMITHKLINE-B0826122A

PATIENT
  Age: 78 Year
  Sex: Male

DRUGS (8)
  1. REQUIP LP [Suspect]
     Indication: PARKINSON^S DISEASE
     Dosage: 8MG Per day
     Route: 048
  2. VEMURAFENIB [Suspect]
     Indication: CHEMOTHERAPY
     Dosage: 720MG Twice per day
     Route: 048
     Dates: start: 20120202, end: 20120302
  3. MODOPAR [Suspect]
     Indication: PARKINSON^S DISEASE
     Dosage: 6UNIT Per day
     Route: 048
  4. SINEMET [Suspect]
     Indication: PARKINSON^S DISEASE
     Dosage: 200MG Three times per day
     Route: 048
  5. MANTADIX [Suspect]
     Indication: PARKINSON^S DISEASE
     Dosage: 100MG Twice per day
     Route: 048
  6. MACROGOL [Concomitant]
     Route: 065
  7. COMTAN [Concomitant]
     Route: 065
  8. FLUTAMIDE [Concomitant]
     Route: 065

REACTIONS (7)
  - Confusional state [Unknown]
  - Extrapyramidal disorder [Unknown]
  - Disorientation [Unknown]
  - Aphasia [Unknown]
  - Renal failure acute [Unknown]
  - Anaemia [Unknown]
  - Myoclonus [Unknown]
